FAERS Safety Report 6761953-X (Version None)
Quarter: 2010Q2

REPORT INFORMATION
  Report Type: 
  Country: None (occurrence: None)
  Receive Date: 20100609
  Receipt Date: 20100604
  Transmission Date: 20101027
  Serious: Yes (Other)
  Sender: FDA-Public Use
  Company Number: FI-JNJFOC-20100601471

PATIENT
  Age: 87 Year
  Sex: Female

DRUGS (3)
  1. REMINYL [Suspect]
     Indication: DEMENTIA ALZHEIMER'S TYPE
     Route: 065
  2. REMINYL [Suspect]
     Route: 065
  3. WARFARIN SODIUM [Concomitant]
     Route: 065

REACTIONS (3)
  - CARDIAC FAILURE [None]
  - CARDIAC FIBRILLATION [None]
  - HYPERTENSION [None]
